FAERS Safety Report 14175368 (Version 1)
Quarter: 2017Q4

REPORT INFORMATION
  Report Type: Spontaneous
  Country: US (occurrence: US)
  Receive Date: 20171109
  Receipt Date: 20171109
  Transmission Date: 20180321
  Serious: No
  Sender: FDA-Public Use
  Company Number: US-SA-2017SA180987

PATIENT
  Age: 54 Year
  Sex: Female

DRUGS (1)
  1. XYZAL ALLERGY 24HR [Suspect]
     Active Substance: LEVOCETIRIZINE DIHYDROCHLORIDE
     Indication: MULTIPLE ALLERGIES
     Route: 048
     Dates: start: 20170920

REACTIONS (3)
  - Cough [Recovered/Resolved]
  - Drug ineffective [Unknown]
  - Paranasal sinus hypersecretion [Recovered/Resolved]

NARRATIVE: CASE EVENT DATE: 20170920
